FAERS Safety Report 24352011 (Version 1)
Quarter: 2024Q3

REPORT INFORMATION
  Report Type: Report from Study
  Country: IT (occurrence: IT)
  Receive Date: 20240923
  Receipt Date: 20240923
  Transmission Date: 20241017
  Serious: No
  Sender: ROCHE
  Company Number: IT-ROCHE-3277863

PATIENT
  Age: 74 Year
  Sex: Female
  Weight: 54.0 kg

DRUGS (27)
  1. HERCEPTIN [Suspect]
     Active Substance: TRASTUZUMAB
     Indication: HER2 positive breast cancer
     Route: 042
     Dates: start: 20180611, end: 20180921
  2. HERCEPTIN [Suspect]
     Active Substance: TRASTUZUMAB
     Route: 042
     Dates: start: 20181012, end: 20191014
  3. HERCEPTIN [Suspect]
     Active Substance: TRASTUZUMAB
     Route: 042
     Dates: start: 20230314, end: 20230414
  4. PERJETA [Suspect]
     Active Substance: PERTUZUMAB
     Indication: HER2 positive breast cancer
     Route: 042
     Dates: start: 20180611, end: 20180921
  5. PERJETA [Suspect]
     Active Substance: PERTUZUMAB
     Route: 042
     Dates: start: 20181012, end: 20191014
  6. KADCYLA [Suspect]
     Active Substance: ADO-TRASTUZUMAB EMTANSINE
     Indication: HER2 positive breast cancer
     Route: 042
     Dates: start: 20191112, end: 20230221
  7. TAXOTERE [Suspect]
     Active Substance: DOCETAXEL
     Indication: HER2 positive breast cancer
     Route: 042
     Dates: start: 20180611, end: 20180921
  8. FEMARA [Suspect]
     Active Substance: LETROZOLE
     Indication: HER2 positive breast cancer
     Route: 048
     Dates: start: 20181109, end: 20230314
  9. DILTIAZEM HYDROCHLORIDE [Concomitant]
     Active Substance: DILTIAZEM HYDROCHLORIDE
     Dosage: ONGOING = CHECKED
     Dates: start: 20201007
  10. TRIARTAN [Concomitant]
     Dosage: ONGOING = CHECKED
     Dates: start: 20200915
  11. PANTOPRAZOLE SODIUM [Concomitant]
     Active Substance: PANTOPRAZOLE SODIUM
     Dosage: ONGOING = CHECKED
     Dates: start: 20200702
  12. METFORMIN HYDROCHLORIDE [Concomitant]
     Active Substance: METFORMIN HYDROCHLORIDE
     Dosage: ONGOING = CHECKED
     Dates: start: 20210521
  13. MERITENE [Concomitant]
     Dosage: ONGOING = CHECKED
     Dates: start: 20220527
  14. LASIX [Concomitant]
     Active Substance: FUROSEMIDE
     Dosage: ONGOING = CHECKED
  15. LETROZOLE [Concomitant]
     Active Substance: LETROZOLE
     Dosage: ONGOING = CHECKED
     Dates: start: 20181109
  16. CALCIUM\CHOLECALCIFEROL [Concomitant]
     Active Substance: CALCIUM\CHOLECALCIFEROL
  17. ERYTHROPOIETIN [Concomitant]
     Active Substance: ERYTHROPOIETIN
  18. LANSOPRAZOLE [Concomitant]
     Active Substance: LANSOPRAZOLE
  19. ZOLEDRONIC ACID [Concomitant]
     Active Substance: ZOLEDRONIC ACID
  20. EPROSARTAN MESYLATE\HYDROCHLOROTHIAZIDE [Concomitant]
     Active Substance: EPROSARTAN MESYLATE\HYDROCHLOROTHIAZIDE
  21. MEDROL [Concomitant]
     Active Substance: METHYLPREDNISOLONE
  22. FENTANYL [Concomitant]
     Active Substance: FENTANYL\FENTANYL CITRATE
  23. DECADRON [Concomitant]
     Active Substance: DEXAMETHASONE
  24. SILLBRAIN [Concomitant]
  25. DECADRON [Concomitant]
     Active Substance: DEXAMETHASONE
  26. SILLBRAIN [Concomitant]
  27. FERROUS SULFATE [Concomitant]
     Active Substance: FERROUS SULFATE

REACTIONS (1)
  - COVID-19 [Recovered/Resolved]

NARRATIVE: CASE EVENT DATE: 20221024
